FAERS Safety Report 13868179 (Version 1)
Quarter: 2017Q3

REPORT INFORMATION
  Report Type: Spontaneous
  Country: AR (occurrence: AR)
  Receive Date: 20170814
  Receipt Date: 20170814
  Transmission Date: 20171127
  Serious: Yes (Other)
  Sender: FDA-Public Use
  Company Number: AR-AMGEN-ARGSP2017123023

PATIENT
  Age: 38 Year
  Sex: Female

DRUGS (1)
  1. ENBREL [Suspect]
     Active Substance: ETANERCEPT
     Indication: RHEUMATOID ARTHRITIS
     Dosage: 50 MG, WEEKLY
     Route: 065
     Dates: start: 20170713

REACTIONS (4)
  - Injection site hypersensitivity [Recovering/Resolving]
  - Gait inability [Recovering/Resolving]
  - Purulent discharge [Recovering/Resolving]
  - Joint effusion [Recovering/Resolving]

NARRATIVE: CASE EVENT DATE: 201707
